FAERS Safety Report 15690185 (Version 1)
Quarter: 2018Q4

REPORT INFORMATION
  Report Type: Report from Study
  Country: CA (occurrence: CA)
  Receive Date: 20181205
  Receipt Date: 20181205
  Transmission Date: 20190205
  Serious: Yes (Other)
  Sender: FDA-Public Use
  Company Number: CA-PFIZER INC-2018143387

PATIENT
  Age: 55 Year
  Sex: Female

DRUGS (6)
  1. METHOTREXATE SODIUM. [Suspect]
     Active Substance: METHOTREXATE SODIUM
     Indication: RHEUMATOID ARTHRITIS
     Dosage: 25 MG, QWK
     Route: 058
     Dates: end: 200711
  2. NAPROSYN [Concomitant]
     Active Substance: NAPROXEN
     Dosage: 250 MG, BID
  3. ADVIL [Concomitant]
     Active Substance: IBUPROFEN
     Dosage: UNK
  4. ENBREL [Suspect]
     Active Substance: ETANERCEPT
     Indication: RHEUMATOID ARTHRITIS
     Dosage: 50 MG, UNK
     Route: 065
     Dates: start: 20051107
  5. MEFENAMIC ACID. [Concomitant]
     Active Substance: MEFENAMIC ACID
     Dosage: UNK
  6. METHOTREXATE SODIUM. [Suspect]
     Active Substance: METHOTREXATE SODIUM
     Dosage: UNK
     Route: 065

REACTIONS (27)
  - Portal tract inflammation [Recovered/Resolved]
  - Paraesthesia [Recovered/Resolved]
  - Osteoarthritis [Recovered/Resolved]
  - Musculoskeletal disorder [Recovered/Resolved]
  - Respiratory tract infection [Recovered/Resolved]
  - Nasopharyngitis [Recovered/Resolved]
  - Arthropathy [Recovered/Resolved]
  - Ear pain [Recovered/Resolved]
  - Portal fibrosis [Recovered/Resolved]
  - Cough [Recovered/Resolved]
  - Foot deformity [Recovered/Resolved]
  - Osteosclerosis [Recovered/Resolved]
  - Osteopenia [Recovered/Resolved]
  - Hepatic steatosis [Recovered/Resolved]
  - Tendonitis [Recovered/Resolved]
  - Nausea [Recovered/Resolved]
  - Cholelithiasis [Recovered/Resolved]
  - Sleep disorder due to general medical condition, insomnia type [Recovered/Resolved]
  - Tooth disorder [Recovered/Resolved]
  - Arthritis [Recovered/Resolved]
  - Goitre [Recovered/Resolved]
  - Hypoaesthesia [Recovered/Resolved]
  - Pain in extremity [Recovered/Resolved]
  - Bone density decreased [Recovered/Resolved]
  - Fatigue [Recovered/Resolved]
  - Dyspnoea [Recovered/Resolved]
  - Drug effect incomplete [Recovered/Resolved]

NARRATIVE: CASE EVENT DATE: 20070926
